FAERS Safety Report 9459553 (Version 2)
Quarter: 2013Q3

REPORT INFORMATION
  Report Type: Spontaneous
  Country: US (occurrence: US)
  Receive Date: 20130815
  Receipt Date: 20130905
  Transmission Date: 20140515
  Serious: No
  Sender: FDA-Public Use
  Company Number: US-PFIZER INC-2013235223

PATIENT
  Age: 50 Year
  Sex: Male

DRUGS (3)
  1. CELEBREX [Suspect]
     Dosage: 200 (UNITS UNSPECIFIED)
     Route: 048
     Dates: start: 20121212, end: 20130109
  2. OXYIR [Concomitant]
     Dosage: UNK
     Dates: start: 20121212
  3. MORPHINE ER [Concomitant]
     Dosage: UNK
     Dates: start: 20121212

REACTIONS (2)
  - Drug hypersensitivity [Unknown]
  - Abdominal discomfort [Recovered/Resolved]
